FAERS Safety Report 21677962 (Version 1)
Quarter: 2022Q4

REPORT INFORMATION
  Report Type: Spontaneous
  Country: FR (occurrence: FR)
  Receive Date: 20221203
  Receipt Date: 20221203
  Transmission Date: 20230112
  Serious: Yes (Hospitalization)
  Sender: FDA-Public Use
  Company Number: None

PATIENT
  Age: 55 Year
  Sex: Male

DRUGS (3)
  1. AMOXICILLIN [Suspect]
     Active Substance: AMOXICILLIN
     Indication: Dental care
     Dosage: UNSPECIFIED, THERAPY END DATE : ASKU
     Route: 065
     Dates: start: 20220819
  2. CHLORHEXIDINE ACETATE [Suspect]
     Active Substance: CHLORHEXIDINE ACETATE
     Indication: Dental care
     Dosage: UNSPECIFIED, DURATION : 1 DAY
     Route: 065
     Dates: start: 20220819, end: 20220819
  3. ARTICAINE HYDROCHLORIDE [Suspect]
     Active Substance: ARTICAINE HYDROCHLORIDE
     Indication: Dental care
     Dosage: UNSPECIFIED, DURATION : 1 DAY
     Route: 065
     Dates: start: 20220819, end: 20220819

REACTIONS (1)
  - Anaphylactic reaction [Recovered/Resolved]

NARRATIVE: CASE EVENT DATE: 20220819
